FAERS Safety Report 11499737 (Version 1)
Quarter: 2015Q3

REPORT INFORMATION
  Report Type: Spontaneous
  Country: IN (occurrence: IN)
  Receive Date: 20150914
  Receipt Date: 20150914
  Transmission Date: 20151125
  Serious: Yes (Hospitalization)
  Sender: FDA-Public Use
  Company Number: IN-ACCORD-033673

PATIENT
  Age: 57 Year
  Sex: Male

DRUGS (2)
  1. CICLOSPORIN [Interacting]
     Active Substance: CYCLOSPORINE
     Indication: PSORIASIS
  2. METHOTREXATE [Suspect]
     Active Substance: METHOTREXATE
     Indication: PSORIASIS
     Route: 030

REACTIONS (6)
  - Rash pustular [Recovering/Resolving]
  - Skin hyperpigmentation [Recovering/Resolving]
  - Oral mucosa erosion [Recovering/Resolving]
  - Toxicity to various agents [Recovering/Resolving]
  - Thrombocytosis [Recovering/Resolving]
  - Drug interaction [Recovering/Resolving]
